FAERS Safety Report 7482518-0 (Version None)
Quarter: 2011Q2

REPORT INFORMATION
  Report Type: 
  Country: None (occurrence: None)
  Receive Date: 20110516
  Receipt Date: 20110506
  Transmission Date: 20111010
  Serious: Yes (Hospitalization, Other)
  Sender: FDA-Public Use
  Company Number: US-ASTRAZENECA-2011SE26744

PATIENT
  Sex: Male

DRUGS (1)
  1. SYMBICORT [Suspect]
     Dosage: 10 MGS TWO PUFFS DAILY
     Route: 055
     Dates: start: 20050101

REACTIONS (3)
  - APPARENT DEATH [None]
  - ASTHMA [None]
  - LOSS OF CONSCIOUSNESS [None]
